FAERS Safety Report 15314332 (Version 1)
Quarter: 2018Q3

REPORT INFORMATION
  Report Type: Spontaneous
  Country: US (occurrence: US)
  Receive Date: 20180824
  Receipt Date: 20180824
  Transmission Date: 20181010
  Serious: No
  Sender: FDA-Public Use
  Company Number: US-PFIZER INC-2018340954

PATIENT
  Age: 55 Year
  Sex: Male

DRUGS (1)
  1. REVATIO [Suspect]
     Active Substance: SILDENAFIL CITRATE
     Dosage: 40 MG, 3X/DAY (TAKING TWO TABLETS THREE TIMES A DAY)

REACTIONS (3)
  - Prescribed overdose [Unknown]
  - Hypersomnia [Unknown]
  - Malaise [Unknown]
